FAERS Safety Report 11524016 (Version 1)
Quarter: 2015Q3

REPORT INFORMATION
  Report Type: Spontaneous
  Country: US (occurrence: US)
  Receive Date: 20150903
  Receipt Date: 20150903
  Transmission Date: 20151125
  Serious: No
  Sender: FDA-Public Use
  Company Number: US-ELI_LILLY_AND_COMPANY-US201304008590

PATIENT

DRUGS (2)
  1. CYMBALTA [Suspect]
     Active Substance: DULOXETINE HYDROCHLORIDE
     Indication: EMOTIONAL DISORDER
     Dosage: 30 MG, EACH EVENING
     Dates: start: 20130425
  2. MELATONIN [Concomitant]
     Active Substance: MELATONIN

REACTIONS (2)
  - Insomnia [Unknown]
  - Nausea [Unknown]

NARRATIVE: CASE EVENT DATE: 20130425
